FAERS Safety Report 9587100 (Version 2)
Quarter: 2013Q4

REPORT INFORMATION
  Report Type: Spontaneous
  Country: US (occurrence: US)
  Receive Date: 20131003
  Receipt Date: 20131105
  Transmission Date: 20140711
  Serious: Yes (Other)
  Sender: FDA-Public Use
  Company Number: US-TEVA-435584USA

PATIENT
  Age: 36 Year
  Sex: Female
  Weight: 93.52 kg

DRUGS (6)
  1. PARAGARD 380A [Suspect]
     Indication: CONTRACEPTION
     Route: 015
     Dates: start: 20130821, end: 20130920
  2. ESTROSTEPAN [Concomitant]
     Route: 048
     Dates: start: 1999
  3. IMURAN [Concomitant]
     Indication: ECZEMA
  4. MVI [Concomitant]
  5. BACITRACIN [Concomitant]
  6. ADVIL [Concomitant]

REACTIONS (5)
  - Metrorrhagia [Recovering/Resolving]
  - Device dislocation [Recovered/Resolved]
  - Muscle spasms [Recovering/Resolving]
  - Pelvic discomfort [Recovered/Resolved]
  - Metrorrhagia [Not Recovered/Not Resolved]
